APPROVED DRUG PRODUCT: DICLOFENAC SODIUM
Active Ingredient: DICLOFENAC SODIUM
Strength: 50MG
Dosage Form/Route: TABLET, DELAYED RELEASE;ORAL
Application: A074459 | Product #002
Applicant: TEVA PHARMACEUTICALS USA
Approved: Jun 25, 1997 | RLD: No | RS: No | Type: DISCN